FAERS Safety Report 7336416-3 (Version None)
Quarter: 2011Q1

REPORT INFORMATION
  Report Type: 
  Country: None (occurrence: None)
  Receive Date: 20110307
  Receipt Date: 20110223
  Transmission Date: 20110831
  Serious: Yes (Hospitalization)
  Sender: FDA-Public Use
  Company Number: JP-AMGEN-JPNCT2010001078

PATIENT
  Age: 55 Year
  Sex: Male
  Weight: 57 kg

DRUGS (9)
  1. CALCIUM LEVOFOLINATE [Concomitant]
     Route: 041
     Dates: end: 20110126
  2. ANTIHISTAMINES [Concomitant]
     Indication: PROPHYLAXIS
     Route: 065
  3. IRINOTECAN HYDROCHLORIDE [Concomitant]
     Route: 041
     Dates: end: 20110126
  4. FLUOROURACIL [Concomitant]
     Indication: COLORECTAL CANCER
     Route: 041
     Dates: start: 20100813
  5. CALCIUM LEVOFOLINATE [Concomitant]
     Indication: COLORECTAL CANCER
     Route: 041
     Dates: start: 20100813
  6. IRINOTECAN HYDROCHLORIDE [Concomitant]
     Indication: COLORECTAL CANCER
     Route: 041
     Dates: start: 20100813
  7. FLUOROURACIL [Concomitant]
     Route: 041
     Dates: end: 20110126
  8. CORTICOSTEROIDS [Concomitant]
     Indication: PROPHYLAXIS
     Route: 065
  9. PANITUMUMAB [Suspect]
     Indication: COLORECTAL CANCER
     Dosage: 6 MG/KG, Q2WK
     Route: 041
     Dates: start: 20100813, end: 20110126

REACTIONS (4)
  - RASH [None]
  - CHEILITIS [None]
  - ILEUS [None]
  - PARONYCHIA [None]
